FAERS Safety Report 5345970-2 (Version None)
Quarter: 2007Q2

REPORT INFORMATION
  Report Type: 
  Country: None (occurrence: None)
  Receive Date: 20070605
  Receipt Date: 20070525
  Transmission Date: 20071010
  Serious: Yes (Disabling)
  Sender: FDA-Public Use
  Company Number: GB-ROCHE-500181

PATIENT
  Age: 30 Year
  Sex: Female
  Weight: 124 kg

DRUGS (2)
  1. ORLISTAT [Suspect]
     Route: 048
     Dates: start: 20060525, end: 20061012
  2. LAMOTRIGINE [Concomitant]
     Indication: EPILEPSY
     Route: 048
     Dates: start: 20020101

REACTIONS (1)
  - EPILEPSY [None]
